FAERS Safety Report 6703951-8 (Version None)
Quarter: 2010Q2

REPORT INFORMATION
  Report Type: 
  Country: None (occurrence: None)
  Receive Date: 20100430
  Receipt Date: 20100419
  Transmission Date: 20101027
  Serious: Yes (Other)
  Sender: FDA-Public Use
  Company Number: DE-PFIZER INC-2010039609

PATIENT
  Age: 76 Year
  Sex: Female
  Weight: 51 kg

DRUGS (5)
  1. XALATAN [Suspect]
     Indication: INTRAOCULAR PRESSURE INCREASED
     Dosage: 1 DROP IN EACH EYE
     Route: 047
     Dates: start: 20100308
  2. LUMIGAN [Suspect]
     Indication: INTRAOCULAR PRESSURE INCREASED
     Dosage: UNK
     Route: 061
     Dates: start: 20060101, end: 20100318
  3. CORTISONE [Concomitant]
     Indication: TEMPORAL ARTERITIS
     Dosage: 5 MG, 1X/DAY
     Route: 048
     Dates: start: 20100401
  4. DECORTIN [Concomitant]
     Indication: TEMPORAL ARTERITIS
  5. ALENDRONIC ACID [Concomitant]

REACTIONS (1)
  - HYPERTENSION [None]
